FAERS Safety Report 20695727 (Version 4)
Quarter: 2022Q3

REPORT INFORMATION
  Report Type: Spontaneous
  Country: JP (occurrence: JP)
  Receive Date: 20220411
  Receipt Date: 20220715
  Transmission Date: 20221027
  Serious: No
  Sender: FDA-Public Use
  Company Number: JP-GLAXOSMITHKLINE-JP2022JPN061099

PATIENT

DRUGS (10)
  1. SOTROVIMAB [Suspect]
     Active Substance: SOTROVIMAB
     Indication: COVID-19
     Dosage: 500 MG/DAY
     Route: 041
     Dates: start: 20220403, end: 20220403
  2. SOTROVIMAB [Suspect]
     Active Substance: SOTROVIMAB
     Indication: SARS-CoV-2 test positive
  3. METOCLOPRAMIDE [Suspect]
     Active Substance: METOCLOPRAMIDE
     Dosage: 10 MGDAY
     Route: 042
     Dates: start: 20220403, end: 20220403
  4. CALCIUM CHLORIDE\POTASSIUM CHLORIDE\SODIUM CHLORIDE\SODIUM LACTATE [Suspect]
     Active Substance: CALCIUM CHLORIDE\POTASSIUM CHLORIDE\SODIUM CHLORIDE\SODIUM LACTATE
     Dosage: 500 ML/DAY
     Route: 041
     Dates: start: 20220403, end: 20220405
  5. DEXTROSE\SODIUM CHLORIDE\SODIUM LACTATE [Suspect]
     Active Substance: DEXTROSE\SODIUM CHLORIDE\SODIUM LACTATE
     Dosage: 500 ML/DAY
     Route: 041
     Dates: start: 20220403, end: 20220405
  6. ACETAMINOPHEN [Suspect]
     Active Substance: ACETAMINOPHEN
     Dosage: 1000 G/DAY
     Route: 041
     Dates: start: 20220403, end: 20220403
  7. CARBOCYSTEINE [Suspect]
     Active Substance: CARBOCYSTEINE
     Dosage: 1500 MG/DAY
     Dates: start: 20220404, end: 20220406
  8. DEXTROMETHORPHAN HYDROBROMIDE [Suspect]
     Active Substance: DEXTROMETHORPHAN HYDROBROMIDE
     Dosage: 90 MG/DAY
     Dates: start: 20220404, end: 20220406
  9. TRANEXAMIC ACID [Suspect]
     Active Substance: TRANEXAMIC ACID
     Dosage: 1500 MG/DAY
     Dates: start: 20220404, end: 20220406
  10. CALONAL [Suspect]
     Active Substance: ACETAMINOPHEN
     Dosage: 1200 MG/DAY
     Dates: start: 20220404, end: 20220404

REACTIONS (1)
  - Exposure during pregnancy [Unknown]
